FAERS Safety Report 23690889 (Version 4)
Quarter: 2024Q2

REPORT INFORMATION
  Report Type: Spontaneous
  Country: JP (occurrence: JP)
  Receive Date: 20240401
  Receipt Date: 20240507
  Transmission Date: 20240716
  Serious: Yes (Life-Threatening, Hospitalization, Other)
  Sender: FDA-Public Use
  Company Number: JP-GLAXOSMITHKLINE-JP2024JPN038728

PATIENT

DRUGS (101)
  1. DAPRODUSTAT [Suspect]
     Active Substance: DAPRODUSTAT
     Indication: Nephrogenic anaemia
     Dosage: 4 MG
     Dates: start: 20230616
  2. DAPRODUSTAT [Suspect]
     Active Substance: DAPRODUSTAT
     Dosage: 6 MG
     Dates: start: 20230627
  3. DAPRODUSTAT [Suspect]
     Active Substance: DAPRODUSTAT
     Dosage: 8 MG
     Dates: start: 20230713
  4. DAPRODUSTAT [Suspect]
     Active Substance: DAPRODUSTAT
     Dosage: 12 MG
     Dates: start: 20230727
  5. DAPRODUSTAT [Suspect]
     Active Substance: DAPRODUSTAT
     Dosage: 18 MG
     Dates: start: 20230817, end: 20231107
  6. CEFOPERAZONE SODIUM\SULBACTAM SODIUM [Suspect]
     Active Substance: CEFOPERAZONE SODIUM\SULBACTAM SODIUM
     Dosage: 1 G, QD
     Dates: start: 20230731, end: 20230807
  7. DARBEPOETIN ALFA [Concomitant]
     Active Substance: DARBEPOETIN ALFA
     Indication: Nephrogenic anaemia
     Dosage: 30
  8. DARBEPOETIN ALFA [Concomitant]
     Active Substance: DARBEPOETIN ALFA
     Dosage: 40
     Dates: start: 20220907
  9. DARBEPOETIN ALFA [Concomitant]
     Active Substance: DARBEPOETIN ALFA
     Dosage: 10
     Dates: start: 20221005
  10. DARBEPOETIN ALFA [Concomitant]
     Active Substance: DARBEPOETIN ALFA
     Dosage: 20
  11. DARBEPOETIN ALFA [Concomitant]
     Active Substance: DARBEPOETIN ALFA
     Dosage: 60, WE
     Dates: start: 20230118
  12. DARBEPOETIN ALFA [Concomitant]
     Active Substance: DARBEPOETIN ALFA
     Dosage: 30 UG, WE
     Dates: start: 20230208
  13. DARBEPOETIN ALFA [Concomitant]
     Active Substance: DARBEPOETIN ALFA
     Dosage: 60 UG, WE
     Dates: start: 20230405
  14. DARBEPOETIN ALFA [Concomitant]
     Active Substance: DARBEPOETIN ALFA
     Dosage: 120 UG, WE
     Dates: start: 20230407
  15. DARBEPOETIN ALFA [Concomitant]
     Active Substance: DARBEPOETIN ALFA
     Dosage: 180 UG, WE
     Dates: start: 20230412
  16. DARBEPOETIN ALFA [Concomitant]
     Active Substance: DARBEPOETIN ALFA
     Dosage: 90 UG, WE
     Dates: start: 20230426
  17. DARBEPOETIN ALFA [Concomitant]
     Active Substance: DARBEPOETIN ALFA
     Dosage: 60 UG, WE
     Dates: start: 20230503
  18. DARBEPOETIN ALFA [Concomitant]
     Active Substance: DARBEPOETIN ALFA
     Dosage: 120 UG, WE
     Dates: start: 20230524, end: 20230616
  19. DARBEPOETIN ALFA [Concomitant]
     Active Substance: DARBEPOETIN ALFA
     Dosage: 180, WE
     Dates: start: 20231108
  20. WARFARIN [Concomitant]
     Active Substance: WARFARIN
     Indication: Atrial fibrillation
     Dosage: 1 MG, QD
     Dates: start: 20231101, end: 20231109
  21. WARFARIN [Concomitant]
     Active Substance: WARFARIN
     Dosage: 0.5 MG, QD
     Dates: start: 20231110
  22. WARFARIN [Concomitant]
     Active Substance: WARFARIN
     Dosage: 0.25 MG, QD
     Dates: start: 20231114
  23. WARFARIN [Concomitant]
     Active Substance: WARFARIN
     Dosage: 0.5 MG, QD
     Dates: start: 20231128
  24. WARFARIN [Concomitant]
     Active Substance: WARFARIN
     Dosage: 0.375 MG
  25. WARFARIN [Concomitant]
     Active Substance: WARFARIN
     Dosage: 0.5 MG
     Dates: start: 20231220
  26. WARFARIN [Concomitant]
     Active Substance: WARFARIN
     Dosage: 0.375 MG
     Dates: start: 20240111, end: 20240123
  27. WARFARIN [Concomitant]
     Active Substance: WARFARIN
     Dosage: 0.25 MG
     Dates: start: 20240126, end: 20240221
  28. ROCALTROL [Concomitant]
     Active Substance: CALCITRIOL
     Dosage: 1, BID
     Dates: start: 20220610
  29. ROCALTROL [Concomitant]
     Active Substance: CALCITRIOL
     Dosage: 1, TID
     Dates: start: 20220610
  30. ROCALTROL [Concomitant]
     Active Substance: CALCITRIOL
     Dosage: 1.5, WE
     Dates: start: 20230405
  31. ROCALTROL [Concomitant]
     Active Substance: CALCITRIOL
     Dosage: 1, WE
     Dates: start: 20230412, end: 20230524
  32. Fesin [Concomitant]
     Dosage: UNK
  33. Myser [Concomitant]
     Dosage: UNK
  34. BELSOMRA [Concomitant]
     Active Substance: SUVOREXANT
     Dosage: 15 MG, 1D, BEFORE BEDTIME
     Dates: start: 20230203
  35. MEROPENEM [Concomitant]
     Active Substance: MEROPENEM
     Dosage: UNK
     Dates: start: 20230403, end: 20230426
  36. MEROPENEM [Concomitant]
     Active Substance: MEROPENEM
     Dosage: UNK
     Dates: start: 20231228, end: 20240112
  37. MEROPENEM [Concomitant]
     Active Substance: MEROPENEM
     Dosage: UNK
     Dates: start: 20240209, end: 20240223
  38. VANCOMYCIN [Concomitant]
     Active Substance: VANCOMYCIN
     Dosage: UNK, REDUCED FROM EVERY DIALYSIS TO ONCE EVERY 2 DIALYSIS DAYS
     Dates: start: 20230403
  39. VANCOMYCIN [Concomitant]
     Active Substance: VANCOMYCIN
     Dosage: UNK UNK, WE
     Dates: start: 20230814, end: 20230828
  40. VANCOMYCIN [Concomitant]
     Active Substance: VANCOMYCIN
     Dosage: 1 G
     Dates: start: 20231002
  41. ABILIFY [Concomitant]
     Active Substance: ARIPIPRAZOLE
     Dosage: 3 MG, BID
     Dates: start: 20230404
  42. RISPERDAL [Concomitant]
     Active Substance: RISPERIDONE
     Dosage: 1 MG, 1D, COMPLETED THEREAFTER
     Route: 055
     Dates: start: 20230404
  43. RISPERDAL [Concomitant]
     Active Substance: RISPERIDONE
     Dosage: 0.5 MG, 1D
     Dates: start: 20230407, end: 20230427
  44. RISPERDAL [Concomitant]
     Active Substance: RISPERIDONE
     Dosage: 1 MG
     Dates: start: 20240221
  45. HUMAN RED BLOOD CELL [Concomitant]
     Active Substance: HUMAN RED BLOOD CELL
     Dosage: 2 U
     Dates: start: 20230406
  46. HUMULIN R [Concomitant]
     Active Substance: INSULIN HUMAN
     Dosage: 6 U, MIXED IN IDPN
     Dates: end: 20230407
  47. HUMULIN R [Concomitant]
     Active Substance: INSULIN HUMAN
     Dosage: 6 U, MIXED IN IDPN
     Dates: start: 20230726
  48. HUMULIN R [Concomitant]
     Active Substance: INSULIN HUMAN
     Dosage: 4 U, MIXED IN TPN
     Dates: start: 20230805
  49. HUMULIN R [Concomitant]
     Active Substance: INSULIN HUMAN
     Dosage: 4 U, MIXED IN IDPN (REDUCED FROM 6 U)
     Dates: start: 20230823
  50. HUMULIN R [Concomitant]
     Active Substance: INSULIN HUMAN
     Dosage: 2 U, MIXED IN IDPN (REDUCED FROM 4 U)
     Dates: start: 20230915
  51. HUMULIN R [Concomitant]
     Active Substance: INSULIN HUMAN
     Dosage: 8 U, QD, MIXED IN TPN (INCREASED FROM 4 U)
     Dates: start: 20231005
  52. HUMULIN R [Concomitant]
     Active Substance: INSULIN HUMAN
     Dosage: 4 U, QD, MIXED IN TPN (REDUCED FROM 8 U)
     Dates: start: 20231006
  53. HUMULIN R [Concomitant]
     Active Substance: INSULIN HUMAN
     Dosage: REDUCED FROM 6 TO 4 U FOR 2ND DOSE ON DIALYSIS DAYS AND FROM 2 TO 0 U ON NON-DIALYSIS DAYS
     Dates: start: 20231024
  54. HUMULIN R [Concomitant]
     Active Substance: INSULIN HUMAN
     Dosage: 1ST DOSE 2 U (REDUCED FROM 4 U), 2ND DOSE 0 U (REDUCED FROM 2 U) IN IDPN
     Dates: start: 20231103
  55. HUMULIN R [Concomitant]
     Active Substance: INSULIN HUMAN
     Dosage: 2 U, QD
     Dates: end: 20240301
  56. TRAMCET [Concomitant]
     Active Substance: ACETAMINOPHEN\TRAMADOL
     Dosage: 1 DF, TID
     Dates: start: 20230407
  57. HERBALS [Concomitant]
     Active Substance: HERBALS
     Dosage: UNK
     Dates: start: 20230407, end: 20230720
  58. MOSAPRIDE CITRATE [Concomitant]
     Active Substance: MOSAPRIDE CITRATE
     Dosage: 1 DF, 1D
     Dates: start: 20230503, end: 20230517
  59. MOSAPRIDE CITRATE [Concomitant]
     Active Substance: MOSAPRIDE CITRATE
     Dosage: 1 DF, 1D
     Dates: start: 20230706
  60. MOSAPRIDE CITRATE [Concomitant]
     Active Substance: MOSAPRIDE CITRATE
     Dosage: UNK UNK, BID
     Dates: start: 20231118
  61. MIYA-BM [Concomitant]
     Active Substance: CLOSTRIDIUM BUTYRICUM SPORES STRAIN M-55
     Dosage: 3 DF
     Dates: start: 20230503
  62. MIYA-BM [Concomitant]
     Active Substance: CLOSTRIDIUM BUTYRICUM SPORES STRAIN M-55
     Dosage: UNK UNK, BID
     Dates: start: 20231118
  63. MIYA-BM [Concomitant]
     Active Substance: CLOSTRIDIUM BUTYRICUM SPORES STRAIN M-55
     Dosage: 3 DF, BID
     Dates: start: 20231229
  64. CELLULASE\DIASTASE\LIPASE [Concomitant]
     Active Substance: CELLULASE\DIASTASE\LIPASE
     Dosage: UNK
     Dates: start: 20230503, end: 20230720
  65. FLAGYL [Concomitant]
     Active Substance: METRONIDAZOLE\METRONIDAZOLE HYDROCHLORIDE
     Dosage: 4000 MG
     Dates: start: 20230507, end: 20230516
  66. HERBAL NOS [Concomitant]
     Active Substance: HERBALS
     Dosage: UNK
     Dates: start: 20230612, end: 20230720
  67. K.C.L. [Concomitant]
     Dosage: 10 MEQ
     Dates: start: 20230627
  68. K.C.L. [Concomitant]
     Dosage: 5 MEQ, QD, ONLY ON DIALYSIS DAYS
     Dates: start: 20231108
  69. K.C.L. [Concomitant]
     Dosage: 5 MEQ, IN IDPN (REDUCED FROM 20 MEQ)
     Dates: start: 20231206, end: 20240117
  70. CEFTRIAXONE [Concomitant]
     Active Substance: CEFTRIAXONE\CEFTRIAXONE SODIUM
     Dosage: 1 G, QD
     Dates: start: 20230727
  71. TENELIGLIPTIN [Concomitant]
     Active Substance: TENELIGLIPTIN
     Dosage: 20 MG
  72. TENELIGLIPTIN [Concomitant]
     Active Substance: TENELIGLIPTIN
     Dosage: 40 MG
     Dates: start: 20230805, end: 20230823
  73. LEVOFLOXACIN [Concomitant]
     Active Substance: LEVOFLOXACIN
     Dosage: UNK
     Dates: start: 20230807
  74. LEVOFLOXACIN [Concomitant]
     Active Substance: LEVOFLOXACIN
     Dosage: UNK
     Dates: start: 20240206
  75. PIPERACILLIN SODIUM\TAZOBACTAM SODIUM [Concomitant]
     Active Substance: PIPERACILLIN SODIUM\TAZOBACTAM SODIUM
     Dosage: UNK
     Dates: start: 20230816, end: 20230830
  76. PIPERACILLIN SODIUM\TAZOBACTAM SODIUM [Concomitant]
     Active Substance: PIPERACILLIN SODIUM\TAZOBACTAM SODIUM
     Dosage: UNK
     Dates: start: 20231117, end: 20231201
  77. PIPERACILLIN SODIUM\TAZOBACTAM SODIUM [Concomitant]
     Active Substance: PIPERACILLIN SODIUM\TAZOBACTAM SODIUM
     Dosage: UNK
     Dates: start: 20231212, end: 20231227
  78. INSULIN NOS [Concomitant]
     Active Substance: INSULIN NOS
     Dosage: UNK, QD
  79. INSULIN NOS [Concomitant]
     Active Substance: INSULIN NOS
     Dosage: UNK, QD
     Dates: start: 20230907
  80. INSULIN NOS [Concomitant]
     Active Substance: INSULIN NOS
     Dosage: UNK, QD
  81. INSULIN NOS [Concomitant]
     Active Substance: INSULIN NOS
     Dosage: UNK, QD
     Dates: start: 20230922, end: 20240308
  82. REBAMIPIDE [Concomitant]
     Active Substance: REBAMIPIDE
     Dosage: 1 DF, TID
     Dates: start: 20231101
  83. REBAMIPIDE [Concomitant]
     Active Substance: REBAMIPIDE
     Dosage: UNK UNK, BID
     Dates: start: 20231118
  84. ESOMEPRAZOLE [Concomitant]
     Active Substance: ESOMEPRAZOLE
     Dosage: UNK
  85. VONOPRAZAN FUMARATE [Concomitant]
     Active Substance: VONOPRAZAN FUMARATE
     Dosage: 20 MG
     Dates: start: 20231102
  86. VONOPRAZAN FUMARATE [Concomitant]
     Active Substance: VONOPRAZAN FUMARATE
     Dosage: 10 MG
     Dates: start: 20240111
  87. BISOPROLOL [Concomitant]
     Active Substance: BISOPROLOL\BISOPROLOL FUMARATE
     Dosage: UNK
     Dates: start: 20231102
  88. ETILEFRINE HYDROCHLORIDE [Concomitant]
     Active Substance: ETILEFRINE HYDROCHLORIDE
     Dosage: UNK
  89. PHENYLEPHRINE HYDROCHLORIDE [Concomitant]
     Active Substance: PHENYLEPHRINE HYDROCHLORIDE
     Dosage: UNK
     Dates: start: 20231106
  90. MENATETRENONE [Concomitant]
     Active Substance: MENATETRENONE
     Dosage: 15 MG, TID
     Dates: start: 20231109, end: 20231110
  91. MENATETRENONE [Concomitant]
     Active Substance: MENATETRENONE
     Dosage: 1 DF, BID
     Dates: start: 20240221, end: 20240225
  92. UNASYN [Concomitant]
     Active Substance: AMPICILLIN SODIUM\SULBACTAM SODIUM
     Dosage: 1 G, QD
     Dates: start: 20231113
  93. CEFTAZIDIME [Concomitant]
     Active Substance: CEFTAZIDIME
     Dosage: UNK
  94. FEXOFENADINE HYDROCHLORIDE [Concomitant]
     Active Substance: FEXOFENADINE HYDROCHLORIDE
     Dosage: 60 MG, 1D
     Dates: start: 20231213
  95. FEXOFENADINE HYDROCHLORIDE [Concomitant]
     Active Substance: FEXOFENADINE HYDROCHLORIDE
     Dosage: 120 MG
     Dates: start: 20231215
  96. FEXOFENADINE HYDROCHLORIDE [Concomitant]
     Active Substance: FEXOFENADINE HYDROCHLORIDE
     Dosage: 240 MG, QD
     Dates: start: 20231220
  97. NALFURAFINE HYDROCHLORIDE [Concomitant]
     Active Substance: NALFURAFINE HYDROCHLORIDE
     Dosage: UNK
     Dates: start: 20231218
  98. HYDROXYZINE HYDROCHLORIDE [Concomitant]
     Active Substance: HYDROXYZINE HYDROCHLORIDE
     Dosage: 100 MG, 1D
  99. ACETAMINOPHEN\TRAMADOL HYDROCHLORIDE [Concomitant]
     Active Substance: ACETAMINOPHEN\TRAMADOL HYDROCHLORIDE
     Dosage: 2 DF, BID
     Dates: start: 20231118
  100. ACETAMINOPHEN\TRAMADOL HYDROCHLORIDE [Concomitant]
     Active Substance: ACETAMINOPHEN\TRAMADOL HYDROCHLORIDE
     Dosage: 2T IN MORNING, 1T IN EVENING, BID
     Dates: start: 20240111
  101. LOXOPROFEN SODIUM [Concomitant]
     Active Substance: LOXOPROFEN SODIUM
     Dosage: 1 DF
     Dates: start: 20240221

REACTIONS (15)
  - Atrial thrombosis [Recovering/Resolving]
  - Pelvic venous thrombosis [Recovering/Resolving]
  - Vena cava thrombosis [Recovering/Resolving]
  - Thrombosis [Recovering/Resolving]
  - Medical device site thrombosis [Recovering/Resolving]
  - Drug-induced liver injury [Recovered/Resolved]
  - Shunt occlusion [Not Recovered/Not Resolved]
  - Gangrene [Not Recovered/Not Resolved]
  - Catheter site haemorrhage [Recovered/Resolved]
  - Catheter site swelling [Recovered/Resolved]
  - Venous stenosis [Not Recovered/Not Resolved]
  - Peripheral vein stenosis [Not Recovered/Not Resolved]
  - Venous occlusion [Not Recovered/Not Resolved]
  - Product use issue [Unknown]
  - Off label use [Unknown]

NARRATIVE: CASE EVENT DATE: 20230807
